FAERS Safety Report 5593016-3 (Version None)
Quarter: 2008Q1

REPORT INFORMATION
  Report Type: 
  Country: None (occurrence: None)
  Receive Date: 20080114
  Receipt Date: 20080105
  Transmission Date: 20080703
  Serious: Yes (Hospitalization)
  Sender: FDA-Public Use
  Company Number: 2008SP000269

PATIENT
  Sex: Female

DRUGS (2)
  1. PEG-INTRON [Suspect]
     Indication: HEPATITIS C
     Dosage: SC
     Route: 058
  2. RIBAVIRIN [Suspect]
     Indication: HEPATITIS C
     Dosage: PO
     Route: 048

REACTIONS (7)
  - ALOPECIA [None]
  - DEHYDRATION [None]
  - PAIN [None]
  - PHARYNGITIS STREPTOCOCCAL [None]
  - PNEUMONIA [None]
  - STOMATITIS [None]
  - WHITE BLOOD CELL COUNT DECREASED [None]
